FAERS Safety Report 23614847 (Version 2)
Quarter: 2024Q2

REPORT INFORMATION
  Report Type: Report from Study
  Country: CA (occurrence: CA)
  Receive Date: 20240311
  Receipt Date: 20240524
  Transmission Date: 20240716
  Serious: Yes (Other)
  Sender: FDA-Public Use
  Company Number: CA-JNJFOC-20240110852

PATIENT
  Age: 45 Year
  Sex: Female
  Weight: 113 kg

DRUGS (12)
  1. REMICADE [Suspect]
     Active Substance: INFLIXIMAB
     Indication: Crohn^s disease
     Dosage: START DATE ALSO REPORTED AS 12-OCT-2022
     Route: 041
     Dates: start: 20180829, end: 20240102
  2. RENFLEXIS [Suspect]
     Active Substance: INFLIXIMAB-ABDA
     Indication: Product used for unknown indication
     Dates: start: 202401
  3. RAMIPRIL [Concomitant]
     Active Substance: RAMIPRIL
  4. RAMIPRIL [Concomitant]
     Active Substance: RAMIPRIL
  5. LYRICA [Concomitant]
     Active Substance: PREGABALIN
  6. ZOLOFT [Concomitant]
     Active Substance: SERTRALINE HYDROCHLORIDE
  7. CLONAZEPAM [Concomitant]
     Active Substance: CLONAZEPAM
     Dosage: AS REQUIRED
  8. BACLOFEN [Concomitant]
     Active Substance: BACLOFEN
     Dosage: AS REQUIRED
  9. WELLBUTRIN [Concomitant]
     Active Substance: BUPROPION HYDROCHLORIDE
  10. WELLBUTRIN [Concomitant]
     Active Substance: BUPROPION HYDROCHLORIDE
  11. LIRAGLUTIDE [Concomitant]
     Active Substance: LIRAGLUTIDE
  12. SAXENDA [Concomitant]
     Active Substance: LIRAGLUTIDE

REACTIONS (4)
  - Myocardial infarction [Recovered/Resolved]
  - Diabetes mellitus [Unknown]
  - COVID-19 [Recovering/Resolving]
  - Ear infection [Recovering/Resolving]

NARRATIVE: CASE EVENT DATE: 20231208
